FAERS Safety Report 8907202 (Version 5)
Quarter: 2013Q2

REPORT INFORMATION
  Report Type: Spontaneous
  Country: JP (occurrence: JP)
  Receive Date: 20121114
  Receipt Date: 20130528
  Transmission Date: 20140414
  Serious: Yes (Hospitalization, Disabling)
  Sender: FDA-Public Use
  Company Number: PHHY2012JP104649

PATIENT
  Age: 63 Year
  Sex: Female
  Weight: 63 kg

DRUGS (9)
  1. DIOVAN [Suspect]
     Indication: HYPERTENSION
     Dosage: 80 MG, DAILY
     Route: 048
     Dates: end: 20120729
  2. DIOVAN [Suspect]
     Dosage: 160 MG, DAILY
     Route: 048
     Dates: start: 20070730, end: 20090819
  3. DIOVAN [Suspect]
     Dosage: 80 MG, DAILY
     Route: 048
     Dates: start: 20090820, end: 20090914
  4. CALBLOCK [Suspect]
     Dosage: 16 MG, DAILY
     Route: 048
     Dates: end: 20120806
  5. BLOPRESS [Suspect]
     Dosage: 12 MG, DAILY
     Route: 048
     Dates: start: 20090915, end: 20121107
  6. NATRIX [Suspect]
     Dosage: 0.5 MG, DAILY
     Route: 048
     Dates: start: 20120214, end: 20121107
  7. ALMARL [Suspect]
     Dosage: 10 MG, DAILY
     Route: 048
     Dates: start: 20110419
  8. DICHLOTRIDE [Suspect]
     Dosage: 12.5 MG, DAILY
     Route: 048
     Dates: start: 20090828, end: 20091019
  9. ECARD [Suspect]
     Dosage: UNK
     Route: 048
     Dates: start: 20101111, end: 20101119

REACTIONS (6)
  - Muscle atrophy [Unknown]
  - Pain in extremity [Not Recovered/Not Resolved]
  - Gait disturbance [Not Recovered/Not Resolved]
  - Dysstasia [Not Recovered/Not Resolved]
  - Muscular weakness [Not Recovered/Not Resolved]
  - Musculoskeletal stiffness [Not Recovered/Not Resolved]
